FAERS Safety Report 17501724 (Version 2)
Quarter: 2020Q1

REPORT INFORMATION
  Report Type: Spontaneous
  Country: GB (occurrence: GB)
  Receive Date: 20200305
  Receipt Date: 20200325
  Transmission Date: 20200409
  Serious: Yes (Hospitalization)
  Sender: FDA-Public Use
  Company Number: GB-PFIZER INC-2020094677

PATIENT
  Age: 35 Year
  Sex: Female

DRUGS (4)
  1. TRANEXAMIC ACID. [Suspect]
     Active Substance: TRANEXAMIC ACID
     Indication: ABORTION SPONTANEOUS
     Dosage: 2 G, 1X/DAY
     Route: 048
     Dates: start: 20200131, end: 20200210
  2. FERROUS FUMARATE [Concomitant]
     Active Substance: FERROUS FUMARATE
     Dosage: UNK
  3. VITAMIN D NOS [Concomitant]
     Active Substance: VITAMIN D NOS
  4. TRANEXAMIC ACID. [Suspect]
     Active Substance: TRANEXAMIC ACID
     Indication: ABORTION SPONTANEOUS
     Dosage: UNK
     Route: 042
     Dates: end: 20200130

REACTIONS (4)
  - Migraine [Unknown]
  - Embolic stroke [Not Recovered/Not Resolved]
  - Confusional state [Unknown]
  - Aphasia [Unknown]

NARRATIVE: CASE EVENT DATE: 20200210
